FAERS Safety Report 8002741-6 (Version None)
Quarter: 2011Q4

REPORT INFORMATION
  Report Type: 
  Country: None (occurrence: None)
  Receive Date: 20111222
  Receipt Date: 20111216
  Transmission Date: 20120403
  Serious: Yes (Hospitalization)
  Sender: FDA-Public Use
  Company Number: US-US-EMD SERONO, INC.-7077815

PATIENT
  Sex: Female

DRUGS (5)
  1. REBIF [Suspect]
     Route: 058
  2. NAPROXEN (ALEVE) [Concomitant]
     Indication: PREMEDICATION
  3. NAPROXEN (ALEVE) [Concomitant]
  4. REBIF [Suspect]
     Indication: PRODUCT USED FOR UNKNOWN INDICATION
     Route: 058
     Dates: start: 20101210
  5. ACETAMINOPHEN [Concomitant]
     Indication: PREMEDICATION

REACTIONS (8)
  - VOMITING [None]
  - INFLUENZA LIKE ILLNESS [None]
  - SYNCOPE [None]
  - WEIGHT INCREASED [None]
  - BLOOD POTASSIUM DECREASED [None]
  - INJECTION SITE ERYTHEMA [None]
  - VERTIGO [None]
  - LOSS OF CONSCIOUSNESS [None]
